FAERS Safety Report 15695059 (Version 1)
Quarter: 2018Q4

REPORT INFORMATION
  Report Type: Spontaneous
  Country: US (occurrence: US)
  Receive Date: 20181206
  Receipt Date: 20181206
  Transmission Date: 20190205
  Serious: No
  Sender: FDA-Public Use
  Company Number: US-PFIZER INC-2017496735

PATIENT
  Age: 5 Year
  Sex: Female
  Weight: 14 kg

DRUGS (3)
  1. GENOTROPIN [Suspect]
     Active Substance: SOMATROPIN
     Indication: GROWTH HORMONE DEFICIENCY
     Dosage: 0.8 MG, CYCLIC (DAILY FOR 6 DAYS A WEEK)
     Dates: end: 201803
  2. GENOTROPIN [Suspect]
     Active Substance: SOMATROPIN
     Indication: BODY HEIGHT BELOW NORMAL
     Dosage: 0.8 MG, CYCLIC (DAILY FOR 6 DAYS A WEEK)
     Dates: start: 201703
  3. VITAMIN D [COLECALCIFEROL] [Concomitant]
     Dosage: UNK

REACTIONS (7)
  - Intentional device misuse [Unknown]
  - Dizziness [Not Recovered/Not Resolved]
  - Device breakage [Unknown]
  - Pain [Not Recovered/Not Resolved]
  - Headache [Not Recovered/Not Resolved]
  - Condition aggravated [Unknown]
  - Product dose omission [Unknown]

NARRATIVE: CASE EVENT DATE: 20171113
